FAERS Safety Report 5105791-2 (Version None)
Quarter: 2006Q3

REPORT INFORMATION
  Report Type: 
  Country: None (occurrence: None)
  Receive Date: 20060915
  Receipt Date: 20060913
  Transmission Date: 20061208
  Serious: Yes (Death)
  Sender: FDA-Public Use
  Company Number: FR-NOVOPROD-256913

PATIENT
  Sex: Female

DRUGS (1)
  1. NOVOSEVEN [Suspect]
     Indication: POSTPARTUM HAEMORRHAGE
     Dosage: 9.6 MG, UNK
     Dates: start: 20060909, end: 20060909

REACTIONS (1)
  - OBSTETRICAL PULMONARY EMBOLISM [None]
